FAERS Safety Report 6555919-2 (Version None)
Quarter: 2010Q1

REPORT INFORMATION
  Report Type: 
  Country: None (occurrence: None)
  Receive Date: 20100128
  Receipt Date: 20100119
  Transmission Date: 20100710
  Serious: Yes (Other)
  Sender: FDA-Public Use
  Company Number: US-JNJFOC-20091204590

PATIENT
  Sex: Female

DRUGS (2)
  1. SANDOZ FENTANYL TRANSDERMAL SYSTEM [Suspect]
     Indication: DRUG USE FOR UNKNOWN INDICATION
     Route: 062
  2. SANDOZ FENTANYL TRANSDERMAL SYSTEM [Suspect]
     Route: 062

REACTIONS (5)
  - ABNORMAL DREAMS [None]
  - FEAR [None]
  - PRODUCT QUALITY ISSUE [None]
  - SUICIDAL IDEATION [None]
  - VISION BLURRED [None]
